FAERS Safety Report 7399600-9 (Version None)
Quarter: 2011Q2

REPORT INFORMATION
  Report Type: 
  Country: None (occurrence: None)
  Receive Date: 20110407
  Receipt Date: 20101029
  Transmission Date: 20111010
  Serious: Yes (Other)
  Sender: FDA-Public Use
  Company Number: US-BAYER-201026848NA

PATIENT
  Sex: Female
  Weight: 70.295 kg

DRUGS (26)
  1. AMOXICILLIN AND CLAVULANATE POTASSIUM [Concomitant]
  2. ONDANSETRON [Concomitant]
  3. AMOXICILLIN [Concomitant]
     Dosage: UNK
     Dates: start: 20061009
  4. AZITHROMYCIN [Concomitant]
     Dosage: UNK
     Dates: start: 20070313
  5. YASMIN [Suspect]
     Indication: DYSMENORRHOEA
  6. OCELLA [Suspect]
     Indication: DYSMENORRHOEA
  7. RISPERDAL [Concomitant]
     Indication: ANXIETY
  8. LEVAQUIN [Concomitant]
     Dosage: UNK
     Dates: start: 20070402
  9. YAZ [Suspect]
     Indication: DYSMENORRHOEA
  10. IBUPROFEN [Concomitant]
  11. TOPAMAX [Concomitant]
     Indication: MIGRAINE
  12. CIPROFLOXACIN [Concomitant]
  13. ALBUTEROL [Concomitant]
     Indication: ASTHMA
  14. ALPRAZOLAM [Concomitant]
  15. YASMIN [Suspect]
     Indication: CONTRACEPTION
     Dosage: UNK
     Dates: start: 20050101, end: 20060101
  16. OCELLA [Suspect]
     Indication: CONTRACEPTION
     Dosage: UNK
     Dates: start: 20090101
  17. OCELLA [Suspect]
     Indication: MENORRHAGIA
  18. FLORINEF [Concomitant]
     Indication: OEDEMA
  19. YAZ [Suspect]
     Indication: CONTRACEPTION
     Dosage: UNK UNK, UNK
     Route: 048
     Dates: start: 20071005, end: 20080601
  20. YAZ [Suspect]
     Indication: MENORRHAGIA
  21. PROMETHAZINE W/ CODEINE [Concomitant]
  22. BUTALBITAL ACETAMINOPHEN AND CAFFEINE [Concomitant]
     Indication: MIGRAINE
  23. MELOXICAM [Concomitant]
  24. PROZAC [Concomitant]
     Indication: DEPRESSION
  25. RELPAX [Concomitant]
     Indication: MIGRAINE
  26. YASMIN [Suspect]
     Indication: MENORRHAGIA

REACTIONS (4)
  - CHOLECYSTITIS CHRONIC [None]
  - MEDICAL DIET [None]
  - GALLBLADDER DISORDER [None]
  - POST PROCEDURAL DIARRHOEA [None]
